FAERS Safety Report 24022802 (Version 5)
Quarter: 2024Q2

REPORT INFORMATION
  Report Type: Report from Study
  Country: US (occurrence: US)
  Receive Date: 20240627
  Receipt Date: 20240628
  Transmission Date: 20240716
  Serious: No
  Sender: FDA-Public Use
  Company Number: US-ROCHE-2348219

PATIENT
  Age: 73 Year
  Sex: Female

DRUGS (7)
  1. ALECENSA [Suspect]
     Active Substance: ALECTINIB HYDROCHLORIDE
     Indication: Lung neoplasm malignant
     Dosage: FOUR CAPSULES TWICE A DAY WITH FOOD SWALLOW WHOLE. DO NOT OPEN OR DISSOLVE THE CAPSULE. IF VOMITING
     Route: 048
  2. ALECENSA [Suspect]
     Active Substance: ALECTINIB HYDROCHLORIDE
     Indication: Bronchial carcinoma
     Route: 048
  3. ALECENSA [Suspect]
     Active Substance: ALECTINIB HYDROCHLORIDE
     Route: 048
  4. ALECENSA [Suspect]
     Active Substance: ALECTINIB HYDROCHLORIDE
     Route: 048
  5. ALECENSA [Suspect]
     Active Substance: ALECTINIB HYDROCHLORIDE
     Route: 048
  6. ALECENSA [Suspect]
     Active Substance: ALECTINIB HYDROCHLORIDE
     Route: 048
  7. ALECENSA [Suspect]
     Active Substance: ALECTINIB HYDROCHLORIDE
     Route: 048

REACTIONS (11)
  - Rash [Unknown]
  - Asthenia [Unknown]
  - Constipation [Unknown]
  - Muscle spasms [Unknown]
  - Weight increased [Unknown]
  - Brain fog [Unknown]
  - Cough [Unknown]
  - Muscular weakness [Unknown]
  - Pain [Unknown]
  - Dizziness [Unknown]
  - Abdominal distension [Unknown]
